FAERS Safety Report 4339644-4 (Version None)
Quarter: 2004Q2

REPORT INFORMATION
  Report Type: 
  Country: None (occurrence: None)
  Receive Date: 20040415
  Receipt Date: 20040402
  Transmission Date: 20050107
  Serious: Yes (Death)
  Sender: FDA-Public Use
  Company Number: CA-MERCK-0404CAN00012

PATIENT
  Age: 62 Year
  Sex: Male
  Weight: 79 kg

DRUGS (2)
  1. HYZAAR [Suspect]
     Indication: HYPERTENSION
     Route: 048
     Dates: start: 20040317, end: 20040329
  2. ROSUVASTATIN CALCIUM [Concomitant]
     Route: 065
     Dates: start: 20040107

REACTIONS (1)
  - MYOCARDIAL INFARCTION [None]
